FAERS Safety Report 5588683-4 (Version None)
Quarter: 2008Q1

REPORT INFORMATION
  Report Type: 
  Country: None (occurrence: None)
  Receive Date: 20080111
  Receipt Date: 20080108
  Transmission Date: 20080703
  Serious: Yes (Hospitalization)
  Sender: FDA-Public Use
  Company Number: A0696998A

PATIENT
  Age: 53 Year
  Sex: Female

DRUGS (2)
  1. ADVAIR DISKUS 100/50 [Suspect]
     Indication: ASTHMA
     Dosage: 1PUFF TWICE PER DAY
     Route: 055
     Dates: start: 20030101
  2. VENTOLIN [Suspect]
     Indication: ASTHMA
     Dosage: 18G AS REQUIRED
     Route: 055
     Dates: start: 20070101

REACTIONS (6)
  - DRUG INEFFECTIVE [None]
  - DYSPNOEA [None]
  - HAEMOPTYSIS [None]
  - PULMONARY CONGESTION [None]
  - SNEEZING [None]
  - THROAT IRRITATION [None]
